FAERS Safety Report 5168921-2 (Version None)
Quarter: 2006Q4

REPORT INFORMATION
  Report Type: 
  Country: None (occurrence: None)
  Receive Date: 20061206
  Receipt Date: 20061206
  Transmission Date: 20070319
  Serious: Yes (Hospitalization)
  Sender: FDA-Public Use
  Company Number: None

PATIENT
  Age: 86 Year
  Sex: Male
  Weight: 81.3299 kg

DRUGS (1)
  1. MS CONTIN [Suspect]
     Dosage: 15MG ORAL BID
     Route: 048

REACTIONS (4)
  - CONDITION AGGRAVATED [None]
  - CONFUSIONAL STATE [None]
  - DIZZINESS [None]
  - FALL [None]
